FAERS Safety Report 11283411 (Version 2)
Quarter: 2015Q3

REPORT INFORMATION
  Report Type: Report from Study
  Country: BR (occurrence: BR)
  Receive Date: 20150720
  Receipt Date: 20150806
  Transmission Date: 20151125
  Serious: Yes (Other)
  Sender: FDA-Public Use
  Company Number: PHHY2014BR125356

PATIENT
  Age: 61 Year
  Sex: Female
  Weight: 88 kg

DRUGS (11)
  1. SANDOSTATIN LAR DEPOT [Suspect]
     Active Substance: OCTREOTIDE ACETATE
     Dosage: 30 MG, QMO (EVERY 28 DAYS)
     Route: 030
     Dates: start: 20120206
  2. NISULID [Concomitant]
     Active Substance: NIMESULIDE
     Indication: SWELLING
     Dosage: 0.5 DF, QD
     Route: 048
  3. CITALOPRAM [Concomitant]
     Active Substance: CITALOPRAM HYDROBROMIDE
     Indication: DEPRESSION
     Dosage: 1 DF, QD
     Route: 048
  4. DOSTINEX [Concomitant]
     Active Substance: CABERGOLINE
     Indication: ACROMEGALY
     Dosage: 3 DF,QW  (WEEKLY)
     Route: 065
  5. SERTRALINE [Concomitant]
     Active Substance: SERTRALINE HYDROCHLORIDE
     Indication: PRODUCT USED FOR UNKNOWN INDICATION
     Dosage: 2 DF, QD (IN THE MORNING)
     Route: 065
  6. GLIFAGE [Concomitant]
     Active Substance: METFORMIN HYDROCHLORIDE
     Indication: GLUCOSE TOLERANCE IMPAIRED
     Dosage: 2 DF, QD (DAILY)
     Route: 048
     Dates: start: 201202
  7. SYNTHROID [Concomitant]
     Active Substance: LEVOTHYROXINE SODIUM
     Indication: THYROID DISORDER
     Dosage: 1 DF, QD
     Route: 048
     Dates: start: 2008
  8. SANDOSTATIN LAR DEPOT [Suspect]
     Active Substance: OCTREOTIDE ACETATE
     Indication: ACROMEGALY
     Dosage: 20 MG, UNK
     Route: 065
  9. LOSARTAN. [Concomitant]
     Active Substance: LOSARTAN
     Indication: HYPERTENSION
     Dosage: 2 DF, QD (DAILY)
     Route: 048
     Dates: start: 2007
  10. CABERGOLINE. [Concomitant]
     Active Substance: CABERGOLINE
     Indication: ACROMEGALY
     Dosage: 2 DF, QW
     Route: 048
  11. TEGRETOL [Concomitant]
     Active Substance: CARBAMAZEPINE
     Indication: PETIT MAL EPILEPSY
     Dosage: 2 DF, UNK
     Route: 065

REACTIONS (24)
  - Decreased immune responsiveness [Recovered/Resolved]
  - Lower extremity mass [Recovering/Resolving]
  - Cholelithiasis [Recovered/Resolved]
  - Weight decreased [Not Recovered/Not Resolved]
  - Blood growth hormone increased [Recovered/Resolved]
  - Spinal pain [Not Recovered/Not Resolved]
  - Blood prolactin decreased [Unknown]
  - Hypotension [Recovered/Resolved]
  - Polyp [Unknown]
  - Nervousness [Unknown]
  - Arthralgia [Recovering/Resolving]
  - Hyperhidrosis [Unknown]
  - Fatigue [Unknown]
  - Sciatic nerve injury [Recovering/Resolving]
  - Headache [Recovering/Resolving]
  - Dengue fever [Recovered/Resolved]
  - Vasodilatation [Recovering/Resolving]
  - Cardiovascular disorder [Recovering/Resolving]
  - Nausea [Recovered/Resolved]
  - Pain in extremity [Recovering/Resolving]
  - Osteoarthritis [Recovering/Resolving]
  - Blood glucose increased [Unknown]
  - Anxiety [Unknown]
  - Weight increased [Unknown]

NARRATIVE: CASE EVENT DATE: 201407
